FAERS Safety Report 5360416-6 (Version None)
Quarter: 2007Q2

REPORT INFORMATION
  Report Type: 
  Country: None (occurrence: None)
  Receive Date: 20070618
  Receipt Date: 20070613
  Transmission Date: 20071010
  Serious: Yes (Death, Life-Threatening, Hospitalization, Other)
  Sender: FDA-Public Use
  Company Number: HQWYE086726OCT04

PATIENT
  Sex: Male
  Weight: 75 kg

DRUGS (4)
  1. RAPAMUNE [Suspect]
     Indication: PROPHYLAXIS AGAINST TRANSPLANT REJECTION
     Route: 048
     Dates: start: 20040922, end: 20041022
  2. RAPAMUNE [Suspect]
     Indication: IMMUNOSUPPRESSANT DRUG THERAPY
  3. SULFAMETHOXAZOLE AND TRIMETHOPRIM [Concomitant]
     Route: 048
     Dates: start: 20040925, end: 20041028
  4. CYCLOSPORINE [Concomitant]
     Route: 048
     Dates: start: 20041021, end: 20041026

REACTIONS (3)
  - CHOLECYSTITIS ACUTE [None]
  - MULTI-ORGAN FAILURE [None]
  - SEPTIC SHOCK [None]
